FAERS Safety Report 8772868 (Version 4)
Quarter: 2012Q4

REPORT INFORMATION
  Report Type: 
  Country: US (occurrence: US)
  Receive Date: 20120907
  Receipt Date: 20121009
  Transmission Date: 20130627
  Serious: Yes (Hospitalization, Other)
  Sender: FDA-Public Use
  Company Number: US-PERRIGO-12US007566

PATIENT
  Age: 43 Year
  Sex: Male
  Weight: 69.84 kg

DRUGS (6)
  1. PHENYLEPHRINE HYDROCHLORIDE 1% 648 [Suspect]
     Indication: PULMONARY CONGESTION
     Dosage: 2 to 3 sprays in each nostril, every 30 min
     Route: 045
     Dates: start: 20120821, end: 20120826
  2. PHENYLEPHRINE HYDROCHLORIDE 1% 648 [Suspect]
     Dosage: 2 to 3 sprays in each nostril, every 10 min
     Route: 045
     Dates: start: 20120827, end: 20120827
  3. OMEPRAZOLE [Concomitant]
     Indication: GASTROOESOPHAGEAL REFLUX DISEASE
     Dosage: 20 mg, bid
     Route: 048
     Dates: start: 1999
  4. CELEXA [Concomitant]
     Indication: DEPRESSION
     Dosage: 40 mg, qd
     Route: 048
     Dates: start: 1999
  5. BUSPAR [Concomitant]
     Indication: ANXIETY
     Dosage: 15
     Route: 048
     Dates: start: 1999
  6. BUSPAR [Concomitant]
     Indication: PANIC ATTACK

REACTIONS (15)
  - Cerebral infarction [Unknown]
  - Hemiplegia [Not Recovered/Not Resolved]
  - Dysarthria [Not Recovered/Not Resolved]
  - Hypoaesthesia [Not Recovered/Not Resolved]
  - Urinary retention [Recovered/Resolved]
  - VIIth nerve paralysis [Not Recovered/Not Resolved]
  - Nausea [Recovered/Resolved]
  - Groin pain [Recovered/Resolved]
  - Paraesthesia [Not Recovered/Not Resolved]
  - Drooling [Unknown]
  - Prostatomegaly [Recovering/Resolving]
  - Inappropriate schedule of drug administration [Unknown]
  - Incorrect drug administration duration [Unknown]
  - Overdose [Unknown]
  - Drug effect decreased [Unknown]
